FAERS Safety Report 10017283 (Version 1)
Quarter: 2014Q1

REPORT INFORMATION
  Report Type: Spontaneous
  Country: US (occurrence: US)
  Receive Date: 20140318
  Receipt Date: 20140318
  Transmission Date: 20141002
  Serious: Yes (Hospitalization)
  Sender: FDA-Public Use
  Company Number: US-JNJFOC-20140306496

PATIENT
  Age: 84 Year
  Sex: Male
  Weight: 73 kg

DRUGS (6)
  1. XARELTO [Suspect]
     Indication: KNEE ARTHROPLASTY
     Route: 048
  2. XARELTO [Suspect]
     Indication: THROMBOSIS PROPHYLAXIS
     Route: 048
  3. METOPROLOL [Concomitant]
     Route: 065
  4. PERCOCET [Concomitant]
     Route: 065
  5. PREDNISONE [Concomitant]
     Route: 065
  6. FLOMAX [Concomitant]
     Route: 065

REACTIONS (2)
  - Local swelling [Recovered/Resolved]
  - Ecchymosis [Recovered/Resolved]
